FAERS Safety Report 24531184 (Version 1)
Quarter: 2024Q4

REPORT INFORMATION
  Report Type: Spontaneous
  Country: CN (occurrence: CN)
  Receive Date: 20241022
  Receipt Date: 20241022
  Transmission Date: 20250114
  Serious: Yes (Hospitalization, Other)
  Sender: ALEXION PHARMACEUTICALS
  Company Number: CN-ASTRAZENECA-202410CHN000826CN

PATIENT
  Age: 62 Year
  Weight: 65 kg

DRUGS (6)
  1. IMFINZI [Suspect]
     Active Substance: DURVALUMAB
     Indication: Chemotherapy
     Dosage: 1 GRAM, QD
  2. IMFINZI [Suspect]
     Active Substance: DURVALUMAB
     Dosage: 1 GRAM, QD
  3. IMFINZI [Suspect]
     Active Substance: DURVALUMAB
     Dosage: 1 GRAM, QD
  4. IMFINZI [Suspect]
     Active Substance: DURVALUMAB
     Dosage: 1 GRAM, QD
  5. TEGAFUR [Suspect]
     Active Substance: TEGAFUR
     Indication: Prophylaxis of nausea and vomiting
     Dosage: 50 MICROGRAM, BID
  6. TEGAFUR [Suspect]
     Active Substance: TEGAFUR
     Dosage: 50 MICROGRAM, BID

REACTIONS (1)
  - Myelosuppression [Recovering/Resolving]
